FAERS Safety Report 15121147 (Version 1)
Quarter: 2018Q3

REPORT INFORMATION
  Report Type: Spontaneous
  Country: US (occurrence: US)
  Receive Date: 20180709
  Receipt Date: 20180709
  Transmission Date: 20181010
  Serious: No
  Sender: FDA-Public Use
  Company Number: US-SA-2018SA182893

PATIENT
  Age: 70 Year
  Sex: Female
  Weight: 72.56 kg

DRUGS (7)
  1. FABRAZYME [Suspect]
     Active Substance: AGALSIDASE BETA
     Dosage: 65 MG, QOW
     Route: 041
     Dates: start: 20180606
  2. EPINEPHRINE. [Concomitant]
     Active Substance: EPINEPHRINE
     Indication: ANAPHYLACTIC REACTION
     Dosage: 0.3 MG AS NEEDED
     Route: 030
     Dates: start: 20180627
  3. CARVEDILOL. [Concomitant]
     Active Substance: CARVEDILOL
     Dosage: 1 TAB, BID
     Route: 048
     Dates: start: 20180606
  4. ASPIRINE [Concomitant]
     Active Substance: ASPIRIN
     Dosage: 1 TAB, QD
     Route: 048
     Dates: start: 20180606
  5. HYDROCORTISONE. [Concomitant]
     Active Substance: HYDROCORTISONE
     Indication: PREMEDICATION
     Dosage: 100 MG PRIOR TO INFUSION
     Route: 042
     Dates: start: 20180627
  6. SODIUM CHLORIDE. [Concomitant]
     Active Substance: SODIUM CHLORIDE
     Indication: FLUSHING
     Dosage: 0.9 %
     Route: 042
     Dates: start: 20180627
  7. CANDESARTAN. [Concomitant]
     Active Substance: CANDESARTAN
     Dosage: 1 TAB, QD
     Route: 048
     Dates: start: 20180606

REACTIONS (2)
  - Feeling jittery [Unknown]
  - Palpitations [Unknown]
